FAERS Safety Report 6737759-4 (Version None)
Quarter: 2010Q2

REPORT INFORMATION
  Report Type: 
  Country: None (occurrence: None)
  Receive Date: 20100521
  Receipt Date: 20100521
  Transmission Date: 20101027
  Serious: Yes (Hospitalization)
  Sender: FDA-Public Use
  Company Number: None

PATIENT
  Age: 55 Year
  Sex: Female
  Weight: 87.7 kg

DRUGS (1)
  1. FERRIC NA GLUCONATE [Suspect]
     Indication: IRON DEFICIENCY ANAEMIA
     Dosage: 125 MG ONCE IV
     Route: 042
     Dates: start: 20100519, end: 20100519

REACTIONS (6)
  - ANAPHYLACTIC SHOCK [None]
  - ANGINA PECTORIS [None]
  - INFUSION RELATED REACTION [None]
  - MYOCARDIAL INFARCTION [None]
  - NAUSEA [None]
  - OCULAR HYPERAEMIA [None]
